FAERS Safety Report 23485725 (Version 1)
Quarter: 2024Q1

REPORT INFORMATION
  Report Type: Spontaneous
  Country: US (occurrence: US)
  Receive Date: 20240206
  Receipt Date: 20240206
  Transmission Date: 20240410
  Serious: Yes (Death, Disabling, Other)
  Sender: FDA-Public Use
  Company Number: US-OPELLA-2024OHG003347

PATIENT
  Age: 60 Year
  Sex: Female

DRUGS (1)
  1. TALC [Suspect]
     Active Substance: TALC
     Indication: Product used for unknown indication

REACTIONS (6)
  - Mesothelioma malignant [Fatal]
  - Injury [Unknown]
  - Emotional distress [Unknown]
  - Pain [Unknown]
  - Anxiety [Unknown]
  - Exposure to chemical pollution [Unknown]

NARRATIVE: CASE EVENT DATE: 20230309
